FAERS Safety Report 7225829-6 (Version None)
Quarter: 2011Q1

REPORT INFORMATION
  Report Type: 
  Country: None (occurrence: None)
  Receive Date: 20110113
  Receipt Date: 20101231
  Transmission Date: 20110831
  Serious: Yes (Hospitalization)
  Sender: FDA-Public Use
  Company Number: US-CELGENEUS-163-20785-07060211

PATIENT
  Age: 76 Year
  Sex: Male
  Weight: 83.5 kg

DRUGS (17)
  1. ARANESP [Concomitant]
     Route: 065
  2. CARAFATE [Concomitant]
     Route: 065
  3. CARBOPLATIN [Suspect]
     Route: 051
     Dates: start: 20060811
  4. ASPIRIN [Concomitant]
     Route: 065
  5. MEGACE [Concomitant]
     Route: 065
  6. THALOMID [Suspect]
     Dosage: 200MG WITH A WEEKLY TITRATION OF 100MG UP TO 1000MG
     Route: 048
     Dates: start: 20060609
  7. DOCUSATE [Concomitant]
     Route: 065
  8. LACTULOSE [Concomitant]
     Route: 065
  9. PACLITAXEL [Suspect]
     Indication: NON-SMALL CELL LUNG CANCER
     Dosage: 225MG/M2
     Route: 051
     Dates: start: 20060609
  10. TYLENOL-500 [Concomitant]
     Route: 065
  11. CARBOPLATIN [Suspect]
     Indication: NON-SMALL CELL LUNG CANCER
     Route: 051
     Dates: start: 20060609
  12. LASIX [Concomitant]
     Route: 065
  13. THALOMID [Suspect]
     Dosage: 200MG WITH A WEEKLY TITRATION OF 100MG UP TO 1000MG
     Route: 048
     Dates: start: 20060811
  14. ETHYOL [Concomitant]
     Route: 065
  15. PACLITAXEL [Suspect]
     Dosage: 225MG/M2
     Route: 051
     Dates: start: 20060811
  16. COMPAZINE [Concomitant]
     Route: 065
  17. COUMADIN [Concomitant]
     Route: 065

REACTIONS (10)
  - HYPOKALAEMIA [None]
  - HYPOMAGNESAEMIA [None]
  - HYPOCALCAEMIA [None]
  - DECREASED APPETITE [None]
  - VOMITING [None]
  - HAEMOGLOBIN DECREASED [None]
  - PLATELET COUNT DECREASED [None]
  - WHITE BLOOD CELL COUNT DECREASED [None]
  - NEUTROPHIL COUNT DECREASED [None]
  - HYPOALBUMINAEMIA [None]
